FAERS Safety Report 5917460-7 (Version None)
Quarter: 2008Q4

REPORT INFORMATION
  Report Type: 
  Country: None (occurrence: None)
  Receive Date: 20081009
  Receipt Date: 20081009
  Transmission Date: 20090506
  Serious: Yes (Disabling)
  Sender: FDA-Public Use
  Company Number: None

PATIENT
  Age: 47 Year
  Sex: Female
  Weight: 48.0813 kg

DRUGS (1)
  1. ARIMIDEX [Suspect]
     Indication: BREAST CANCER
     Dosage: 1 MG QD PO
     Route: 048
     Dates: start: 20080209, end: 20081008

REACTIONS (5)
  - DRUG INEFFECTIVE [None]
  - MOVEMENT DISORDER [None]
  - MUSCLE CONTRACTURE [None]
  - PAIN IN EXTREMITY [None]
  - TRIGGER FINGER [None]
